FAERS Safety Report 25305115 (Version 4)
Quarter: 2025Q2

REPORT INFORMATION
  Report Type: Report from Study
  Country: US (occurrence: US)
  Receive Date: 20250513
  Receipt Date: 20250528
  Transmission Date: 20250717
  Serious: Yes (Hospitalization)
  Sender: ALNYLAM PHARMACEUTICALS
  Company Number: US-ALNYLAM PHARMACEUTICALS, INC.-ALN-2025-003060

PATIENT

DRUGS (2)
  1. GIVLAARI [Suspect]
     Active Substance: GIVOSIRAN SODIUM
     Indication: Porphyria acute
     Dosage: 231.75 MILLIGRAM (189 MILLIGRAM/MILLILITER VIALS), MONTHLY
     Route: 058
     Dates: start: 20240118, end: 20240118
  2. HEMIN [Concomitant]
     Active Substance: HEMIN
     Indication: Product used for unknown indication
     Route: 065
     Dates: start: 20250501

REACTIONS (10)
  - Tremor [Unknown]
  - Seizure [Unknown]
  - Porphyria acute [Unknown]
  - Vomiting [Unknown]
  - Weight decreased [Unknown]
  - Nausea [Unknown]
  - Photophobia [Unknown]
  - Fatigue [Unknown]
  - Abdominal pain [Unknown]
  - Intentional dose omission [Unknown]

NARRATIVE: CASE EVENT DATE: 20250501
